FAERS Safety Report 5772332-6 (Version None)
Quarter: 2008Q2

REPORT INFORMATION
  Report Type: 
  Country: None (occurrence: None)
  Receive Date: 20080613
  Receipt Date: 20080602
  Transmission Date: 20081010
  Serious: Yes (Other)
  Sender: FDA-Public Use
  Company Number: US-ROCHE-569538

PATIENT
  Sex: Female

DRUGS (1)
  1. CAPECITABINE [Suspect]
     Dosage: TAKEN IN THE MORNING AND EVENING, TAKEN FOR 7 DAYS FOLLOWED BY A 7 DAY REST.
     Route: 048

REACTIONS (2)
  - ASPARTATE AMINOTRANSFERASE INCREASED [None]
  - BREAST CANCER METASTATIC [None]
